FAERS Safety Report 21311006 (Version 1)
Quarter: 2022Q3

REPORT INFORMATION
  Report Type: Spontaneous
  Country: US (occurrence: None)
  Receive Date: 20220909
  Receipt Date: 20220909
  Transmission Date: 20221027
  Serious: No
  Sender: FDA-Public Use
  Company Number: US-ARIS GLOBAL-202112-2350

PATIENT
  Age: 79 Year
  Sex: Male

DRUGS (8)
  1. OXERVATE [Suspect]
     Active Substance: CENEGERMIN-BKBJ
     Indication: Neurotrophic keratopathy
     Route: 047
     Dates: start: 20211209, end: 20220128
  2. OXERVATE [Suspect]
     Active Substance: CENEGERMIN-BKBJ
     Route: 047
     Dates: start: 20220203, end: 20220210
  3. PRED FORTE [Concomitant]
     Active Substance: PREDNISOLONE ACETATE
     Indication: Corneal transplant
     Dosage: ON THE RIGHT EYE, EVERY MORNING
  4. TIMOLOL MALEATE [Concomitant]
     Active Substance: TIMOLOL MALEATE
     Indication: Open angle glaucoma
     Route: 047
     Dates: end: 20220204
  5. TACROLIMUS [Concomitant]
     Active Substance: TACROLIMUS
     Indication: Blepharitis
     Dosage: 1/2 INCH AT BEDTIME
     Dates: start: 20211108, end: 202201
  6. PREDNISOLONE [Concomitant]
     Active Substance: PREDNISOLONE
     Indication: Corneal transplant
  7. LATANOPROST [Concomitant]
     Active Substance: LATANOPROST
     Indication: Open angle glaucoma
     Dates: start: 20220204
  8. DORZOLAMIDE\TIMOLOL [Concomitant]
     Active Substance: DORZOLAMIDE\TIMOLOL
     Indication: Open angle glaucoma
     Dosage: 2%-0.5%
     Dates: start: 20220204

REACTIONS (4)
  - Intentional product misuse [Recovered/Resolved]
  - Eye pain [Not Recovered/Not Resolved]
  - Vision blurred [Recovered/Resolved]
  - Eye irritation [Recovered/Resolved]

NARRATIVE: CASE EVENT DATE: 20211231
